FAERS Safety Report 16260632 (Version 1)
Quarter: 2019Q2

REPORT INFORMATION
  Report Type: Spontaneous
  Country: CN (occurrence: CN)
  Receive Date: 20190501
  Receipt Date: 20190501
  Transmission Date: 20190711
  Serious: Yes (Hospitalization)
  Sender: FDA-Public Use
  Company Number: CN-EISAI MEDICAL RESEARCH-EC-2019-055782

PATIENT
  Age: 37 Year
  Sex: Male

DRUGS (7)
  1. TEICOPLANIN [Suspect]
     Active Substance: TEICOPLANIN
     Indication: INFECTION
     Route: 042
     Dates: start: 20190219, end: 20190313
  2. POLYENEPHOSPHATIDYLCHOLINE [Concomitant]
     Indication: HEPATOBILLIARY DISORDER PROPHYLAXIS
     Dosage: 10 ML, DOSAGE NOT REPORTED
     Route: 042
     Dates: start: 20190222, end: 20190313
  3. AMIKACIN SULPHATE [Concomitant]
     Active Substance: AMIKACIN SULFATE
     Indication: INFECTION
     Route: 042
     Dates: start: 20190308, end: 20190322
  4. RABEPRAZOLE [Suspect]
     Active Substance: RABEPRAZOLE
     Indication: PROPHYLAXIS AGAINST GASTROINTESTINAL ULCER
     Route: 048
     Dates: start: 20190304, end: 20190313
  5. TEICOPLANIN [Suspect]
     Active Substance: TEICOPLANIN
     Route: 042
     Dates: start: 20190314
  6. BISOPROLOL FUMARATE. [Concomitant]
     Active Substance: BISOPROLOL FUMARATE
     Indication: HYPERTENSION
     Route: 048
     Dates: start: 20190222, end: 20190322
  7. REBAMIPIDE [Concomitant]
     Active Substance: REBAMIPIDE
     Indication: PROPHYLAXIS AGAINST GASTROINTESTINAL ULCER
     Route: 048
     Dates: start: 20190227, end: 20190322

REACTIONS (1)
  - Thrombocytopenia [Recovered/Resolved]

NARRATIVE: CASE EVENT DATE: 20190314
